FAERS Safety Report 25479836 (Version 2)
Quarter: 2025Q3

REPORT INFORMATION
  Report Type: Spontaneous
  Country: JP (occurrence: JP)
  Receive Date: 20250625
  Receipt Date: 20250802
  Transmission Date: 20251020
  Serious: Yes (Other)
  Sender: ALEXION PHARMACEUTICALS
  Company Number: JP-ASTRAZENECA-250061902_030110_P_1

PATIENT
  Age: 80 Year
  Sex: Male

DRUGS (20)
  1. FASENRA [Suspect]
     Active Substance: BENRALIZUMAB
     Indication: Asthma
  2. FASENRA [Suspect]
     Active Substance: BENRALIZUMAB
  3. SYMBICORT [Suspect]
     Active Substance: BUDESONIDE\FORMOTEROL FUMARATE DIHYDRATE
     Indication: Asthma
  4. BREZTRI [Suspect]
     Active Substance: BUDESONIDE\FORMOTEROL\GLYCOPYRROLATE
     Indication: Chronic obstructive pulmonary disease
  5. PREDNISOLONE [Concomitant]
     Active Substance: PREDNISOLONE
     Route: 065
  6. PREDNISOLONE [Concomitant]
     Active Substance: PREDNISOLONE
     Route: 065
  7. PREDNISOLONE [Concomitant]
     Active Substance: PREDNISOLONE
     Route: 065
  8. PREDNISOLONE [Concomitant]
     Active Substance: PREDNISOLONE
     Route: 065
  9. PREDNISOLONE [Concomitant]
     Active Substance: PREDNISOLONE
     Route: 065
  10. PREDNISOLONE [Concomitant]
     Active Substance: PREDNISOLONE
     Route: 065
  11. PREDNISOLONE [Concomitant]
     Active Substance: PREDNISOLONE
     Route: 065
  12. PREDNISOLONE [Concomitant]
     Active Substance: PREDNISOLONE
     Route: 065
  13. PREDNISOLONE [Concomitant]
     Active Substance: PREDNISOLONE
     Route: 065
  14. PREDNISOLONE [Concomitant]
     Active Substance: PREDNISOLONE
     Route: 065
  15. PREDNISOLONE [Concomitant]
     Active Substance: PREDNISOLONE
     Route: 065
  16. PREDNISOLONE [Concomitant]
     Active Substance: PREDNISOLONE
     Route: 065
  17. PREDNISOLONE [Concomitant]
     Active Substance: PREDNISOLONE
     Route: 065
  18. PREDNISOLONE [Concomitant]
     Active Substance: PREDNISOLONE
     Route: 065
  19. LEVOCETIRIZINE HYDROCHLORIDE [Concomitant]
     Active Substance: LEVOCETIRIZINE HYDROCHLORIDE
     Route: 065
  20. THEOPHYLLINE [Concomitant]
     Active Substance: THEOPHYLLINE
     Route: 065

REACTIONS (6)
  - Cerebral infarction [Unknown]
  - Asthma [Recovering/Resolving]
  - Lung opacity [Recovering/Resolving]
  - Chest discomfort [Unknown]
  - Dyspnoea [Unknown]
  - Wheezing [Unknown]
